FAERS Safety Report 6131717-9 (Version None)
Quarter: 2009Q1

REPORT INFORMATION
  Report Type: 
  Country: None (occurrence: None)
  Receive Date: 20090325
  Receipt Date: 20090313
  Transmission Date: 20090719
  Serious: Yes (Death, Hospitalization)
  Sender: FDA-Public Use
  Company Number: CN-ROCHE-617772

PATIENT
  Sex: Male

DRUGS (2)
  1. MYCOPHENOLATE MOFETIL [Suspect]
     Indication: RENAL TRANSPLANT
     Route: 048
  2. VANCOMYCIN HCL [Suspect]
     Indication: RENAL TRANSPLANT
     Route: 048

REACTIONS (1)
  - LUNG INFECTION [None]
